FAERS Safety Report 10352424 (Version 1)
Quarter: 2014Q3

REPORT INFORMATION
  Report Type: Spontaneous
  Country: US (occurrence: US)
  Receive Date: 20140730
  Receipt Date: 20140730
  Transmission Date: 20150326
  Serious: No
  Sender: FDA-Public Use
  Company Number: US-ABBVIE-14P-163-1214958-00

PATIENT
  Sex: Female
  Weight: 81.72 kg

DRUGS (1)
  1. SYNTHROID [Suspect]
     Active Substance: LEVOTHYROXINE SODIUM
     Indication: HYPOTHYROIDISM
     Dates: start: 2013

REACTIONS (5)
  - Malaise [Unknown]
  - Psychomotor hyperactivity [Unknown]
  - Feeling jittery [Unknown]
  - Agitation [Unknown]
  - Alopecia [Unknown]

NARRATIVE: CASE EVENT DATE: 2013
